FAERS Safety Report 5418062-1 (Version None)
Quarter: 2007Q3

REPORT INFORMATION
  Report Type: 
  Country: None (occurrence: None)
  Receive Date: 20070817
  Receipt Date: 20070814
  Transmission Date: 20080115
  Serious: Yes (Hospitalization)
  Sender: FDA-Public Use
  Company Number: NL-AVENTIS-200717415GDDC

PATIENT
  Age: 65 Year
  Sex: Female

DRUGS (5)
  1. AMARYL [Suspect]
     Route: 048
     Dates: start: 20070720, end: 20070721
  2. METOPROLOL SUCCINATE [Concomitant]
  3. NORVASC [Concomitant]
  4. TRIAMTERENE AND HYDROCHLOROTHIAZIDE [Concomitant]
     Dosage: DOSE: 50/25
  5. SIMVASTATIN [Concomitant]

REACTIONS (1)
  - CONVULSION [None]
